FAERS Safety Report 14046752 (Version 2)
Quarter: 2018Q1

REPORT INFORMATION
  Report Type: Spontaneous
  Country: JP (occurrence: JP)
  Receive Date: 20171005
  Receipt Date: 20180122
  Transmission Date: 20180508
  Serious: Yes (Other)
  Sender: FDA-Public Use
  Company Number: PHJP2017JP004037

PATIENT
  Age: 61 Year
  Sex: Male

DRUGS (2)
  1. VOTRIENT [Suspect]
     Active Substance: PAZOPANIB HYDROCHLORIDE
     Indication: RENAL CELL CARCINOMA
     Dosage: 400 MG, QD
     Route: 048
     Dates: start: 20170119, end: 20170822
  2. VOTRIENT [Suspect]
     Active Substance: PAZOPANIB HYDROCHLORIDE
     Indication: RENAL CANCER STAGE IV
     Dosage: 400 MG, QD
     Route: 048
     Dates: start: 20170831

REACTIONS (9)
  - Large intestine polyp [Unknown]
  - Balance disorder [Recovering/Resolving]
  - Haematochezia [Recovered/Resolved]
  - Haemorrhoids [Unknown]
  - Hypertension [Recovering/Resolving]
  - Dizziness [Unknown]
  - Gastrointestinal mucosa hyperaemia [Unknown]
  - Gastrointestinal polyp haemorrhage [Recovered/Resolved]
  - Protein urine present [Recovering/Resolving]

NARRATIVE: CASE EVENT DATE: 20170202
